FAERS Safety Report 15119330 (Version 2)
Quarter: 2018Q3

REPORT INFORMATION
  Report Type: Report from Study
  Country: NL (occurrence: NL)
  Receive Date: 20180709
  Receipt Date: 20180717
  Transmission Date: 20181010
  Serious: Yes (Hospitalization)
  Sender: FDA-Public Use
  Company Number: NL-AMGEN-NLDSL2018089059

PATIENT
  Age: 42 Year
  Sex: Female

DRUGS (1)
  1. NEULASTA [Suspect]
     Active Substance: PEGFILGRASTIM
     Indication: NEUTROPENIA
     Dosage: 0.6 ML, Q2WK
     Route: 058
     Dates: start: 20180613

REACTIONS (8)
  - Erythema [Not Recovered/Not Resolved]
  - Eye pain [Recovering/Resolving]
  - Pain in jaw [Recovering/Resolving]
  - Migraine [Recovering/Resolving]
  - Bone pain [Recovering/Resolving]
  - Vomiting [Recovered/Resolved]
  - Neck pain [Recovering/Resolving]
  - Blister [Unknown]

NARRATIVE: CASE EVENT DATE: 20180614
